FAERS Safety Report 21517550 (Version 2)
Quarter: 2022Q4

REPORT INFORMATION
  Report Type: Report from Study
  Country: CA (occurrence: CA)
  Receive Date: 20221028
  Receipt Date: 20221230
  Transmission Date: 20230113
  Serious: Yes (Other)
  Sender: FDA-Public Use
  Company Number: CA-NOVARTISPH-NVSC2022CA238347

PATIENT
  Age: 55 Year
  Sex: Male

DRUGS (1)
  1. HYRIMOZ [Suspect]
     Active Substance: ADALIMUMAB-ADAZ
     Indication: Ankylosing spondylitis
     Dosage: 40 MG
     Route: 058
     Dates: start: 20220726

REACTIONS (3)
  - Crohn^s disease [Recovering/Resolving]
  - Uveitis [Recovering/Resolving]
  - Drug effect less than expected [Unknown]
